FAERS Safety Report 9625490 (Version 1)
Quarter: 2013Q4

REPORT INFORMATION
  Report Type: Spontaneous
  Country: US (occurrence: US)
  Receive Date: 20131016
  Receipt Date: 20131016
  Transmission Date: 20140711
  Serious: No
  Sender: FDA-Public Use
  Company Number: US-PFIZER INC-2013295118

PATIENT
  Age: 34 Year
  Sex: Female

DRUGS (1)
  1. CHANTIX [Suspect]
     Indication: SMOKING CESSATION THERAPY
     Dosage: UNK

REACTIONS (9)
  - Mental disorder [Unknown]
  - Malaise [Unknown]
  - Feeling abnormal [Unknown]
  - Emotional disorder [Unknown]
  - Drug intolerance [Unknown]
  - Mood altered [Unknown]
  - Hostility [Unknown]
  - Tremor [Unknown]
  - Nervousness [Unknown]
